FAERS Safety Report 17063355 (Version 1)
Quarter: 2019Q4

REPORT INFORMATION
  Report Type: Spontaneous
  Country: US (occurrence: US)
  Receive Date: 20191122
  Receipt Date: 20191122
  Transmission Date: 20200122
  Serious: Yes (Disabling)
  Sender: FDA-Public Use
  Company Number: None

PATIENT
  Age: 61 Year
  Sex: Female
  Weight: 72.9 kg

DRUGS (20)
  1. PRAMIPEXOLE. [Concomitant]
     Active Substance: PRAMIPEXOLE
  2. OXYBUTININ [Concomitant]
     Active Substance: OXYBUTYNIN
  3. PIROXICAM. [Concomitant]
     Active Substance: PIROXICAM
  4. OXYGEN. [Concomitant]
     Active Substance: OXYGEN
  5. CARANEBERRY CAPS [Concomitant]
  6. GLIMEPERIDE [Concomitant]
     Active Substance: GLIMEPIRIDE
  7. SPIRIVA [Concomitant]
     Active Substance: TIOTROPIUM BROMIDE MONOHYDRATE
  8. HYDROCODONE/ACETIM [Concomitant]
  9. PIOGLIYAZONE [Concomitant]
  10. METFORMIN [Concomitant]
     Active Substance: METFORMIN HYDROCHLORIDE
  11. HYDROXIN [Concomitant]
  12. GABAPENTINE [Concomitant]
     Active Substance: GABAPENTIN
  13. ESCILALOPRAM [Concomitant]
  14. CIPHROFLOXCIN [Suspect]
     Active Substance: CIPROFLOXACIN
     Indication: URINARY TRACT INFECTION
     Dosage: ?          QUANTITY:1 CAPSULE(S);?
     Route: 048
  15. PROAIR INHALER [Concomitant]
     Active Substance: ALBUTEROL SULFATE
  16. PROPRANOLOL [Concomitant]
     Active Substance: PROPRANOLOL HYDROCHLORIDE
  17. LISINOPRIL. [Concomitant]
     Active Substance: LISINOPRIL
  18. FENOFIBRATE. [Concomitant]
     Active Substance: FENOFIBRATE
  19. ROPINOLE [Concomitant]
  20. TUMERIC/BROMULIN [Concomitant]

REACTIONS (2)
  - Ill-defined disorder [None]
  - Discontinued product administered [None]

NARRATIVE: CASE EVENT DATE: 20191101
